APPROVED DRUG PRODUCT: CODAMINE
Active Ingredient: HYDROCODONE BITARTRATE; PHENYLPROPANOLAMINE HYDROCHLORIDE
Strength: 5MG/5ML;25MG/5ML
Dosage Form/Route: SYRUP;ORAL
Application: A075103 | Product #001
Applicant: ALPHARMA US PHARMACEUTICALS DIVISION
Approved: Sep 29, 2000 | RLD: No | RS: No | Type: DISCN